FAERS Safety Report 19449056 (Version 1)
Quarter: 2021Q2

REPORT INFORMATION
  Report Type: Spontaneous
  Country: US (occurrence: US)
  Receive Date: 20210622
  Receipt Date: 20210622
  Transmission Date: 20210717
  Serious: No
  Sender: FDA-Public Use
  Company Number: US-SA-2021SA201517

PATIENT
  Age: 31 Year
  Sex: Female

DRUGS (8)
  1. HYDROXYZINE HCL [Concomitant]
     Active Substance: HYDROXYZINE HYDROCHLORIDE
  2. MOMETASONE FUROATE. [Concomitant]
     Active Substance: MOMETASONE FUROATE
  3. CLOBETASOL PROPIONATE. [Concomitant]
     Active Substance: CLOBETASOL PROPIONATE
  4. VANDAZOLE [Concomitant]
     Active Substance: METRONIDAZOLE
     Dosage: 4MG
  5. DUPIXENT [Suspect]
     Active Substance: DUPILUMAB
     Indication: ASTHMA
  6. METHYLPREDNISOLONE. [Concomitant]
     Active Substance: METHYLPREDNISOLONE
     Dosage: 4MG
  7. NICOTINE. [Concomitant]
     Active Substance: NICOTINE
  8. MUPIROCIN. [Concomitant]
     Active Substance: MUPIROCIN

REACTIONS (3)
  - Product use issue [Unknown]
  - Malaise [Unknown]
  - Product dose omission issue [Unknown]

NARRATIVE: CASE EVENT DATE: 20210611
